FAERS Safety Report 7793342-3 (Version None)
Quarter: 2011Q4

REPORT INFORMATION
  Report Type: 
  Country: None (occurrence: None)
  Receive Date: 20111003
  Receipt Date: 20110531
  Transmission Date: 20120403
  Serious: Yes (Other)
  Sender: FDA-Public Use
  Company Number: ES-BAYER-2011-048121

PATIENT
  Age: 64 Year
  Sex: Female

DRUGS (1)
  1. MOXIFLOXACIN [Suspect]
     Indication: RESPIRATORY TRACT INFECTION
     Dosage: 400 MG, QD
     Route: 048
     Dates: start: 20110505, end: 20110510

REACTIONS (3)
  - ASTHENIA [None]
  - MUSCLE SPASMS [None]
  - PAIN [None]
